FAERS Safety Report 9194075 (Version 1)
Quarter: 2013Q1

REPORT INFORMATION
  Report Type: Spontaneous
  Country: DE (occurrence: DE)
  Receive Date: 20130327
  Receipt Date: 20130327
  Transmission Date: 20140127
  Serious: Yes (Other)
  Sender: FDA-Public Use
  Company Number: DE-ELI_LILLY_AND_COMPANY-DE201303007549

PATIENT
  Sex: Male

DRUGS (10)
  1. BYETTA [Suspect]
     Indication: DIABETES MELLITUS
     Dosage: UNK, UNKNOWN
     Route: 058
     Dates: start: 201211, end: 20130314
  2. PREDNISOLON [Concomitant]
     Dosage: 5 MG, UNKNOWN
  3. TAMSULOSIN [Concomitant]
  4. INSPRA [Concomitant]
     Dosage: 25 MG, UNKNOWN
  5. MARCUMAR [Concomitant]
  6. PANTOZOL [Concomitant]
  7. TORASEMID [Concomitant]
  8. LYRICA [Concomitant]
  9. MIRTAZAPIN [Concomitant]
  10. NOVALGIN [Concomitant]

REACTIONS (1)
  - Blood glucose increased [Not Recovered/Not Resolved]
